FAERS Safety Report 7053195-8 (Version None)
Quarter: 2010Q4

REPORT INFORMATION
  Report Type: 
  Country: None (occurrence: None)
  Receive Date: 20101020
  Receipt Date: 20101008
  Transmission Date: 20110411
  Serious: Yes (Hospitalization)
  Sender: FDA-Public Use
  Company Number: US-JNJFOC-20101002932

PATIENT
  Sex: Male
  Weight: 53.9 kg

DRUGS (5)
  1. REMICADE [Suspect]
     Indication: INFLAMMATORY BOWEL DISEASE
     Route: 042
  2. METHOTREXATE [Concomitant]
  3. PREDNISONE [Concomitant]
  4. SEPTRA [Concomitant]
  5. TACROLIMUS [Concomitant]

REACTIONS (1)
  - VIRAL INFECTION [None]
